FAERS Safety Report 9320379 (Version 3)
Quarter: 2013Q3

REPORT INFORMATION
  Report Type: Spontaneous
  Country: BR (occurrence: BR)
  Receive Date: 20130530
  Receipt Date: 20130716
  Transmission Date: 20140515
  Serious: Yes (Hospitalization)
  Sender: FDA-Public Use
  Company Number: BR-B.I. PHARMACEUTICALS,INC./RIDGEFIELD-2013-BR-00620BR

PATIENT
  Age: 73 Year
  Sex: Male

DRUGS (4)
  1. PRADAXA [Suspect]
     Indication: CEREBROVASCULAR ACCIDENT
     Dosage: 220 MG
     Route: 048
     Dates: start: 2011
  2. PRADAXA [Suspect]
     Dosage: 300 MG
     Route: 048
     Dates: start: 20130506
  3. LOSARTAN [Concomitant]
     Indication: HYPERTENSION
  4. AMIODARONE [Concomitant]
     Indication: ARRHYTHMIA

REACTIONS (4)
  - Cerebrovascular accident [Recovered/Resolved]
  - Drug ineffective [Recovered/Resolved]
  - Thrombosis [Recovered/Resolved]
  - Sinus arrhythmia [Recovered/Resolved]
